FAERS Safety Report 4688328-1 (Version None)
Quarter: 2005Q2

REPORT INFORMATION
  Report Type: 
  Country: None (occurrence: None)
  Receive Date: 20050609
  Receipt Date: 20050516
  Transmission Date: 20051028
  Serious: Yes (Hospitalization, Other)
  Sender: FDA-Public Use
  Company Number: 2005-UK-00393UK

PATIENT
  Age: 61 Year
  Sex: Male

DRUGS (5)
  1. MICARDIS [Suspect]
     Indication: ACUTE MYOCARDIAL INFARCTION
     Dosage: 80 MG
     Dates: start: 20010815
  2. SIMVASTATIN [Suspect]
     Indication: ACUTE MYOCARDIAL INFARCTION
     Dosage: 40 MG
  3. SALMETEROL (SALMETEROL) [Suspect]
     Indication: ACUTE MYOCARDIAL INFARCTION
     Dosage: (25 MG)
  4. BELCLOFORTE [Suspect]
     Indication: ACUTE MYOCARDIAL INFARCTION
     Dosage: 250 MCG
  5. SALBUTAMOL (SALBUTAMOL) [Suspect]
     Indication: ACUTE MYOCARDIAL INFARCTION
     Dosage: 100 MG

REACTIONS (1)
  - ACUTE MYOCARDIAL INFARCTION [None]
